FAERS Safety Report 7061982-5 (Version None)
Quarter: 2010Q4

REPORT INFORMATION
  Report Type: 
  Country: None (occurrence: None)
  Receive Date: 20101026
  Receipt Date: 20100913
  Transmission Date: 20110411
  Serious: Yes (Death, Other)
  Sender: FDA-Public Use
  Company Number: US-BAXTER-2009BH019968

PATIENT
  Age: 60 Year
  Sex: Male

DRUGS (83)
  1. HEPARIN SODIUM INJECTION [Suspect]
     Indication: CORONARY ARTERY BYPASS
     Route: 065
     Dates: start: 20071211, end: 20071212
  2. HEPARIN SODIUM INJECTION [Suspect]
     Indication: CORONARY ANGIOPLASTY
     Route: 065
     Dates: start: 20071211, end: 20071212
  3. HEPARIN SODIUM INJECTION [Suspect]
     Indication: THROMBECTOMY
     Route: 065
     Dates: start: 20071211, end: 20071212
  4. HEPARIN SODIUM INJECTION [Suspect]
     Indication: CATHETERISATION CARDIAC
     Route: 065
     Dates: start: 20071211, end: 20071212
  5. HEPARIN SODIUM INJECTION [Suspect]
     Indication: INTRA-AORTIC BALLOON PLACEMENT
     Route: 065
     Dates: start: 20071211, end: 20071212
  6. HEPARIN SODIUM INJECTION [Suspect]
     Indication: MYOCARDIAL INFARCTION
     Route: 065
     Dates: start: 20071211, end: 20071212
  7. HEPARIN SODIUM INJECTION [Suspect]
     Indication: VENA CAVA FILTER INSERTION
     Route: 065
     Dates: start: 20071211, end: 20071212
  8. HEPARIN SODIUM INJECTION [Suspect]
     Indication: HAEMODIALYSIS
     Route: 065
     Dates: start: 20071211, end: 20071212
  9. HEPARIN SODIUM INJECTION [Suspect]
     Route: 065
     Dates: start: 20071215, end: 20071223
  10. HEPARIN SODIUM INJECTION [Suspect]
     Route: 065
     Dates: start: 20071215, end: 20071223
  11. HEPARIN SODIUM INJECTION [Suspect]
     Route: 065
     Dates: start: 20071215, end: 20071223
  12. HEPARIN SODIUM INJECTION [Suspect]
     Route: 065
     Dates: start: 20071215, end: 20071223
  13. HEPARIN SODIUM INJECTION [Suspect]
     Route: 065
     Dates: start: 20071215, end: 20071223
  14. HEPARIN SODIUM INJECTION [Suspect]
     Route: 065
     Dates: start: 20071215, end: 20071223
  15. HEPARIN SODIUM INJECTION [Suspect]
     Route: 065
     Dates: start: 20071215, end: 20071223
  16. HEPARIN SODIUM INJECTION [Suspect]
     Route: 065
     Dates: start: 20071215, end: 20071223
  17. HEPARIN SODIUM INJECTION [Suspect]
     Route: 058
     Dates: start: 20071221
  18. HEPARIN SODIUM INJECTION [Suspect]
     Route: 058
     Dates: start: 20071221
  19. HEPARIN SODIUM INJECTION [Suspect]
     Route: 058
     Dates: start: 20071221
  20. HEPARIN SODIUM INJECTION [Suspect]
     Route: 058
     Dates: start: 20071221
  21. HEPARIN SODIUM INJECTION [Suspect]
     Route: 058
     Dates: start: 20071221
  22. HEPARIN SODIUM INJECTION [Suspect]
     Route: 058
     Dates: start: 20071221
  23. HEPARIN SODIUM INJECTION [Suspect]
     Route: 058
     Dates: start: 20071221
  24. HEPARIN SODIUM INJECTION [Suspect]
     Route: 058
     Dates: start: 20071221
  25. HEPARIN SODIUM INJECTION [Suspect]
     Route: 042
     Dates: start: 20071211, end: 20071211
  26. HEPARIN SODIUM INJECTION [Suspect]
     Route: 042
     Dates: start: 20071211, end: 20071211
  27. HEPARIN SODIUM INJECTION [Suspect]
     Route: 042
     Dates: start: 20071211, end: 20071211
  28. HEPARIN SODIUM INJECTION [Suspect]
     Route: 042
     Dates: start: 20071211, end: 20071211
  29. HEPARIN SODIUM INJECTION [Suspect]
     Route: 042
     Dates: start: 20071211, end: 20071211
  30. HEPARIN SODIUM INJECTION [Suspect]
     Route: 042
     Dates: start: 20071211, end: 20071211
  31. HEPARIN SODIUM INJECTION [Suspect]
     Route: 042
     Dates: start: 20071211, end: 20071211
  32. HEPARIN SODIUM INJECTION [Suspect]
     Route: 042
     Dates: start: 20071211, end: 20071211
  33. HEPARIN SODIUM INJECTION [Suspect]
     Route: 065
     Dates: start: 20071211, end: 20071211
  34. HEPARIN SODIUM INJECTION [Suspect]
     Route: 065
     Dates: start: 20071211, end: 20071211
  35. HEPARIN SODIUM INJECTION [Suspect]
     Route: 065
     Dates: start: 20071211, end: 20071211
  36. HEPARIN SODIUM INJECTION [Suspect]
     Route: 065
     Dates: start: 20071211, end: 20071211
  37. HEPARIN SODIUM INJECTION [Suspect]
     Route: 065
     Dates: start: 20071211, end: 20071211
  38. HEPARIN SODIUM INJECTION [Suspect]
     Route: 065
     Dates: start: 20071211, end: 20071211
  39. HEPARIN SODIUM INJECTION [Suspect]
     Route: 065
     Dates: start: 20071211, end: 20071211
  40. HEPARIN SODIUM INJECTION [Suspect]
     Route: 065
     Dates: start: 20071211, end: 20071211
  41. HEPARIN SODIUM INJECTION [Suspect]
     Route: 065
     Dates: start: 20071228, end: 20071228
  42. HEPARIN SODIUM INJECTION [Suspect]
     Route: 065
     Dates: start: 20071228, end: 20071228
  43. HEPARIN SODIUM INJECTION [Suspect]
     Route: 065
     Dates: start: 20071228, end: 20071228
  44. HEPARIN SODIUM INJECTION [Suspect]
     Route: 065
     Dates: start: 20071228, end: 20071228
  45. HEPARIN SODIUM INJECTION [Suspect]
     Route: 065
     Dates: start: 20071228, end: 20071228
  46. HEPARIN SODIUM INJECTION [Suspect]
     Route: 065
     Dates: start: 20071228, end: 20071228
  47. HEPARIN SODIUM INJECTION [Suspect]
     Route: 065
     Dates: start: 20071228, end: 20071228
  48. HEPARIN SODIUM INJECTION [Suspect]
     Route: 065
     Dates: start: 20071228, end: 20071228
  49. HEPARIN SODIUM INJECTION [Suspect]
     Route: 042
     Dates: start: 20080327, end: 20080506
  50. HEPARIN SODIUM INJECTION [Suspect]
     Route: 042
     Dates: start: 20080327, end: 20080506
  51. HEPARIN SODIUM INJECTION [Suspect]
     Route: 042
     Dates: start: 20080327, end: 20080506
  52. HEPARIN SODIUM INJECTION [Suspect]
     Route: 042
     Dates: start: 20080327, end: 20080506
  53. HEPARIN SODIUM INJECTION [Suspect]
     Route: 042
     Dates: start: 20080327, end: 20080506
  54. HEPARIN SODIUM INJECTION [Suspect]
     Route: 042
     Dates: start: 20080327, end: 20080506
  55. HEPARIN SODIUM INJECTION [Suspect]
     Route: 042
     Dates: start: 20080327, end: 20080506
  56. HEPARIN SODIUM INJECTION [Suspect]
     Route: 042
     Dates: start: 20080327, end: 20080506
  57. HEPARIN SODIUM INJECTION [Suspect]
     Route: 058
     Dates: start: 20071216, end: 20071223
  58. HEPARIN SODIUM INJECTION [Suspect]
     Route: 058
     Dates: start: 20071216, end: 20071223
  59. HEPARIN SODIUM INJECTION [Suspect]
     Route: 058
     Dates: start: 20071216, end: 20071223
  60. HEPARIN SODIUM INJECTION [Suspect]
     Route: 058
     Dates: start: 20071216, end: 20071223
  61. HEPARIN SODIUM INJECTION [Suspect]
     Route: 058
     Dates: start: 20071216, end: 20071223
  62. HEPARIN SODIUM INJECTION [Suspect]
     Route: 058
     Dates: start: 20071216, end: 20071223
  63. HEPARIN SODIUM INJECTION [Suspect]
     Route: 058
     Dates: start: 20071216, end: 20071223
  64. HEPARIN SODIUM INJECTION [Suspect]
     Route: 058
     Dates: start: 20071216, end: 20071223
  65. HEPARIN SODIUM INJECTION [Suspect]
     Route: 065
     Dates: start: 20071221, end: 20071221
  66. HEPARIN SODIUM INJECTION [Suspect]
     Route: 065
     Dates: start: 20071221, end: 20071221
  67. HEPARIN SODIUM INJECTION [Suspect]
     Route: 065
     Dates: start: 20071221, end: 20071221
  68. HEPARIN SODIUM INJECTION [Suspect]
     Route: 065
     Dates: start: 20071221, end: 20071221
  69. HEPARIN SODIUM INJECTION [Suspect]
     Route: 065
     Dates: start: 20071221, end: 20071221
  70. HEPARIN SODIUM INJECTION [Suspect]
     Route: 065
     Dates: start: 20071221, end: 20071221
  71. HEPARIN SODIUM INJECTION [Suspect]
     Route: 065
     Dates: start: 20071221, end: 20071221
  72. HEPARIN SODIUM INJECTION [Suspect]
     Route: 065
     Dates: start: 20071221, end: 20071221
  73. HEPARIN SODIUM INJECTION [Suspect]
     Route: 042
     Dates: start: 20071222, end: 20071222
  74. HEPARIN SODIUM INJECTION [Suspect]
     Route: 042
     Dates: start: 20071222, end: 20071222
  75. HEPARIN SODIUM INJECTION [Suspect]
     Route: 042
     Dates: start: 20071222, end: 20071222
  76. HEPARIN SODIUM INJECTION [Suspect]
     Route: 042
     Dates: start: 20071222, end: 20071222
  77. HEPARIN SODIUM INJECTION [Suspect]
     Route: 042
     Dates: start: 20071222, end: 20071222
  78. HEPARIN SODIUM INJECTION [Suspect]
     Route: 042
     Dates: start: 20071222, end: 20071222
  79. HEPARIN SODIUM INJECTION [Suspect]
     Route: 042
     Dates: start: 20071222, end: 20071222
  80. HEPARIN SODIUM INJECTION [Suspect]
     Route: 042
     Dates: start: 20071222, end: 20071222
  81. HEPARIN SODIUM IN 0.9% SODIUM CHLORIDE IN PLASTIC CONTAINER [Suspect]
     Indication: CATHETERISATION CARDIAC
     Route: 042
     Dates: start: 20071211, end: 20071211
  82. HEPARIN SODIUM IN 0.9% SODIUM CHLORIDE IN PLASTIC CONTAINER [Suspect]
     Route: 042
     Dates: start: 20071221, end: 20071221
  83. MULTI-VITAMINS [Concomitant]
     Indication: PRODUCT USED FOR UNKNOWN INDICATION
     Route: 048

REACTIONS (23)
  - ACUTE RESPIRATORY FAILURE [None]
  - APHASIA [None]
  - ARTERIAL RUPTURE [None]
  - BRADYCARDIA [None]
  - CARDIO-RESPIRATORY ARREST [None]
  - CARDIOGENIC SHOCK [None]
  - CORONARY ARTERY THROMBOSIS [None]
  - DIARRHOEA [None]
  - DYSPHAGIA [None]
  - EXTRAVASATION [None]
  - GRAFT COMPLICATION [None]
  - HEPARIN-INDUCED THROMBOCYTOPENIA [None]
  - HEPATIC FAILURE [None]
  - HYPOTENSION [None]
  - HYPOXIC-ISCHAEMIC ENCEPHALOPATHY [None]
  - LEFT VENTRICULAR DYSFUNCTION [None]
  - LOBAR PNEUMONIA [None]
  - MENTAL DISORDER [None]
  - PAIN [None]
  - PLATELET COUNT DECREASED [None]
  - RENAL FAILURE [None]
  - UNRESPONSIVE TO STIMULI [None]
  - VOMITING [None]
